FAERS Safety Report 21808796 (Version 1)
Quarter: 2023Q1

REPORT INFORMATION
  Report Type: Spontaneous
  Country: US (occurrence: US)
  Receive Date: 20230103
  Receipt Date: 20230103
  Transmission Date: 20230418
  Serious: No
  Sender: FDA-Public Use
  Company Number: US-Accord-276301

PATIENT
  Sex: Female
  Weight: 79.38 kg

DRUGS (1)
  1. SERTRALINE [Suspect]
     Active Substance: SERTRALINE HYDROCHLORIDE
     Indication: Product used for unknown indication
     Dosage: TAKING 50MG THEN HER DOCTOR CUT IT?DOWN TO 25MG AND THEN SHE STOPPED

REACTIONS (5)
  - Pruritus [Recovering/Resolving]
  - Illness [Recovering/Resolving]
  - Insomnia [Recovering/Resolving]
  - Drug hypersensitivity [Recovering/Resolving]
  - Product substitution issue [Unknown]
